FAERS Safety Report 10771948 (Version 1)
Quarter: 2015Q1

REPORT INFORMATION
  Report Type: Report from Study
  Country: KR (occurrence: KR)
  Receive Date: 20150206
  Receipt Date: 20150206
  Transmission Date: 20150721
  Serious: Yes (Other)
  Sender: FDA-Public Use
  Company Number: KR-ASTRAZENECA-2015SE10616

PATIENT

DRUGS (1)
  1. AZD6140 [Suspect]
     Active Substance: TICAGRELOR
     Indication: RENAL FAILURE
     Route: 048

REACTIONS (1)
  - Hearing impaired [Unknown]
